FAERS Safety Report 7781768-3 (Version None)
Quarter: 2011Q3

REPORT INFORMATION
  Report Type: 
  Country: None (occurrence: None)
  Receive Date: 20110927
  Receipt Date: 20110912
  Transmission Date: 20111222
  Serious: Yes (Life-Threatening)
  Sender: FDA-Public Use
  Company Number: US-GLAXOSMITHKLINE-A0944159A

PATIENT
  Age: 76 Year
  Sex: Female

DRUGS (2)
  1. ONDANSETRON [Concomitant]
  2. PROMACTA [Suspect]
     Indication: IDIOPATHIC THROMBOCYTOPENIC PURPURA
     Dosage: 50MG PER DAY
     Route: 048
     Dates: start: 20110901, end: 20110923

REACTIONS (7)
  - CHROMATURIA [None]
  - FAECES DISCOLOURED [None]
  - VOMITING [None]
  - PYREXIA [None]
  - RASH [None]
  - DYSKINESIA [None]
  - DYSPHAGIA [None]
